FAERS Safety Report 10470361 (Version 3)
Quarter: 2015Q2

REPORT INFORMATION
  Report Type: Spontaneous
  Country: US (occurrence: US)
  Receive Date: 20140923
  Receipt Date: 20150617
  Transmission Date: 20150821
  Serious: Yes (Hospitalization)
  Sender: FDA-Public Use
  Company Number: US-BAYER-2014-141516

PATIENT
  Age: 31 Year
  Sex: Female
  Weight: 119 kg

DRUGS (1)
  1. MIRENA [Suspect]
     Active Substance: LEVONORGESTREL
     Indication: CONTRACEPTION
     Dosage: 20 MCG/24HR, CONT
     Route: 015
     Dates: start: 20110207, end: 20121010

REACTIONS (9)
  - Device issue [None]
  - Uterine perforation [None]
  - Medical device discomfort [None]
  - Device defective [None]
  - Procedural pain [None]
  - Pain [None]
  - Device difficult to use [None]
  - Injury [None]
  - General physical health deterioration [None]

NARRATIVE: CASE EVENT DATE: 20110509
